FAERS Safety Report 20723922 (Version 1)
Quarter: 2022Q2

REPORT INFORMATION
  Report Type: Spontaneous
  Country: US (occurrence: US)
  Receive Date: 20220419
  Receipt Date: 20220419
  Transmission Date: 20220721
  Serious: No
  Sender: FDA-Public Use
  Company Number: US-BAYER-2022A050643

PATIENT
  Sex: Female

DRUGS (1)
  1. MIRALAX [Suspect]
     Active Substance: POLYETHYLENE GLYCOL 3350
     Dosage: CAPFUL ONCE A DAY MIXED WITH JUICE OR WATER (8 OZ) DOSE
     Route: 048

REACTIONS (1)
  - Product prescribing error [Unknown]
